FAERS Safety Report 13151218 (Version 1)
Quarter: 2017Q1

REPORT INFORMATION
  Report Type: Spontaneous
  Country: US (occurrence: US)
  Receive Date: 20170125
  Receipt Date: 20170125
  Transmission Date: 20170428
  Serious: No
  Sender: FDA-Public Use
  Company Number: US-TEVA-732472USA

PATIENT
  Sex: Female

DRUGS (1)
  1. COPAXONE [Suspect]
     Active Substance: GLATIRAMER ACETATE
     Dosage: UNKNOWN FORM STRENGTH
     Route: 058

REACTIONS (7)
  - Injection site pain [Unknown]
  - Anxiety [Unknown]
  - Depression [Unknown]
  - Injection site reaction [Unknown]
  - Headache [Unknown]
  - Adverse event [Unknown]
  - Drug dose omission [Unknown]
